FAERS Safety Report 7792694-8 (Version None)
Quarter: 2011Q3

REPORT INFORMATION
  Report Type: 
  Country: None (occurrence: None)
  Receive Date: 20110929
  Receipt Date: 20110916
  Transmission Date: 20111222
  Serious: Yes (Life-Threatening, Hospitalization)
  Sender: FDA-Public Use
  Company Number: TCI2011A04298

PATIENT
  Age: 78 Year
  Sex: Female

DRUGS (9)
  1. METACT COMBINATION TABLETS LD (PIOGLITAZONE HYDROCHLORIDE, METFORMIN H [Suspect]
     Indication: TYPE 2 DIABETES MELLITUS
     Dosage: 1 TAB. (1 TAB.,1 IN 1 D) PER ORAL
     Route: 048
     Dates: start: 20100812, end: 20110702
  2. ACTOS [Suspect]
     Indication: TYPE 2 DIABETES MELLITUS
     Dosage: 15 MG (15 MG,1 IN 1 D) PER ORAL
     Route: 048
     Dates: start: 20091226, end: 20100812
  3. METFORMIN HYDROCHLORIDE [Concomitant]
  4. BASEN OD TABLETS 0.3 (VOGLIBOSE) [Concomitant]
  5. NOVORAPID 30 MIX (INSULIN ASPART) [Concomitant]
  6. NORVASC [Concomitant]
  7. RASILEZ (ALISKIREN) [Concomitant]
  8. REZALTAS HD (OLMESARTAN MEDOXOMIL/AZELNIDIPINE) (ANTIHYPERTENSIVES) [Concomitant]
  9. CANDESARTAN CILEXETIL [Concomitant]

REACTIONS (1)
  - BLADDER CANCER [None]
